FAERS Safety Report 9331848 (Version 1)
Quarter: 2013Q2

REPORT INFORMATION
  Report Type: Spontaneous
  Country: FR (occurrence: FR)
  Receive Date: 20130605
  Receipt Date: 20130605
  Transmission Date: 20140414
  Serious: Yes (Other)
  Sender: FDA-Public Use
  Company Number: FR-PFIZER INC-2013167861

PATIENT
  Age: 43 Year
  Sex: Female

DRUGS (4)
  1. XANAX [Suspect]
     Dosage: 0.25 MG, 1X/DAY
     Route: 048
  2. GILENYA [Suspect]
     Indication: MULTIPLE SCLEROSIS
     Dosage: 0.5 MG, 1X/DAY
     Route: 048
     Dates: start: 20120619
  3. DEROXAT [Suspect]
     Dosage: 1 DF, 1X/DAY
     Route: 048
  4. IMOVANE [Suspect]
     Dosage: 1 DF, 1X/DAY
     Route: 048

REACTIONS (3)
  - Loose tooth [Not Recovered/Not Resolved]
  - Periodontitis [Unknown]
  - Gingival discolouration [Unknown]
